FAERS Safety Report 15735858 (Version 1)
Quarter: 2018Q4

REPORT INFORMATION
  Report Type: Spontaneous
  Country: NL (occurrence: NL)
  Receive Date: 20181218
  Receipt Date: 20181218
  Transmission Date: 20190205
  Serious: Yes (Hospitalization)
  Sender: FDA-Public Use
  Company Number: NL-TEVA-2018-NL-987153

PATIENT
  Age: 75 Year
  Sex: Male

DRUGS (10)
  1. QUETIAPINE TABLET FO 25MG FILMOMHULDE TABLET, 25 MG (MILLIGRAM) [Concomitant]
     Active Substance: QUETIAPINE FUMARATE
     Dosage: 25 MILLIGRAM DAILY; 1 TIME PER DAY 1 PIECE (S)
     Route: 048
  2. DIVISUN TABLET 800IE [Concomitant]
     Dosage: 800 IU (INTERNATIONAL UNIT) DAILY; 1 TIME PER DAY 1 PIECE (S)
     Route: 048
  3. HALOPERIDOL TABLET 1MG [Interacting]
     Active Substance: HALOPERIDOL
     Indication: DEMENTIA
  4. METFORMIN [Concomitant]
     Active Substance: METFORMIN HYDROCHLORIDE
     Dosage: 500 MILLIGRAM DAILY; 1 TIME PER DAY 1 PIECE (S)
     Route: 048
  5. HALOPERIDOL TABLET 1MG [Interacting]
     Active Substance: HALOPERIDOL
     Indication: RESTLESSNESS
     Dosage: 1 MILLIGRAM DAILY; 2 TIMES A DAY 1 PIECE (S)
     Route: 048
     Dates: start: 2015
  6. OMEPRAZOL CAPSULE MSR 40MG [Concomitant]
     Active Substance: OMEPRAZOLE
     Dosage: 40 MILLIGRAM DAILY; 1 TIME PER DAY 1 PIECE (S)
     Route: 048
  7. LORAZEPAM TABLET 1MG [Suspect]
     Active Substance: LORAZEPAM
     Indication: INSOMNIA
     Dosage: 1 MILLIGRAM DAILY; 1 TIME PER DAY 1 PIECE (S)
     Route: 048
     Dates: start: 20160321, end: 20160401
  8. PRAVASTATINE TABLET 20MG [Concomitant]
     Dosage: 20 MILLIGRAM DAILY; 1 TIME PER DAY 1 PIECE (S)
     Route: 048
  9. PERSANTIN RETARD CAPSULE MGA 200MG [Concomitant]
     Dosage: 200 MILLIGRAM DAILY; 2 TIMES A DAY 1 PIECE (S)
     Route: 048
  10. ACETYLSALICYLZUUR TABLET 80MG [Concomitant]
     Dosage: 80 MILLIGRAM DAILY; 1 TIME PER DAY 1 PIECE (S)
     Route: 048

REACTIONS (2)
  - Depressed level of consciousness [Recovered/Resolved]
  - Drug interaction [Recovered/Resolved]

NARRATIVE: CASE EVENT DATE: 20160401
